FAERS Safety Report 6826785-2 (Version None)
Quarter: 2010Q3

REPORT INFORMATION
  Report Type: 
  Country: None (occurrence: None)
  Receive Date: 20100709
  Receipt Date: 20100706
  Transmission Date: 20110219
  Serious: Yes (Hospitalization)
  Sender: FDA-Public Use
  Company Number: FR-WYE-G06366210

PATIENT
  Age: 80 Year
  Sex: Male

DRUGS (6)
  1. TAZOCILLINE [Suspect]
     Dosage: UNKNOWN
     Route: 042
     Dates: start: 20091101, end: 20091123
  2. ROCEPHIN [Suspect]
     Indication: PNEUMONIA
     Dosage: UNKNOWN
     Route: 051
     Dates: start: 20091102, end: 20091109
  3. VANCOMYCIN [Suspect]
     Dosage: UNKNOWN
     Route: 051
     Dates: start: 20091101, end: 20091123
  4. AMIKIN [Suspect]
     Route: 051
     Dates: start: 20091114, end: 20091114
  5. OFLOCET [Suspect]
     Dosage: UNKNOWN
     Dates: start: 20091111, end: 20091114
  6. NEBCIN [Suspect]
     Dosage: UNKNOWN
     Route: 051
     Dates: start: 20091111, end: 20091114

REACTIONS (3)
  - ACUTE GENERALISED EXANTHEMATOUS PUSTULOSIS [None]
  - CLOSTRIDIUM DIFFICILE COLITIS [None]
  - SEPTIC SHOCK [None]
